FAERS Safety Report 9157345 (Version 2)
Quarter: 2014Q1

REPORT INFORMATION
  Report Type: Spontaneous
  Country: US (occurrence: US)
  Receive Date: 20130312
  Receipt Date: 20140325
  Transmission Date: 20141002
  Serious: Yes (Hospitalization)
  Sender: FDA-Public Use
  Company Number: US-B.I. PHARMACEUTICALS,INC./RIDGEFIELD-2013-BI-05890BP

PATIENT
  Age: 68 Year
  Sex: Male
  Weight: 217.72 kg

DRUGS (6)
  1. PRADAXA [Suspect]
     Indication: ANTICOAGULANT THERAPY
     Route: 065
     Dates: start: 201109, end: 201204
  2. POTASSIUM CHLORTAB [Concomitant]
     Route: 065
     Dates: start: 201101
  3. METOPROLOL [Concomitant]
     Route: 065
     Dates: start: 199801
  4. FUROSEMIDE [Concomitant]
     Route: 065
     Dates: start: 199601
  5. AMIODARONE [Concomitant]
     Route: 065
     Dates: start: 199610
  6. LISINOPRIL [Concomitant]
     Route: 065
     Dates: start: 199301

REACTIONS (3)
  - Gastrointestinal haemorrhage [Unknown]
  - Epistaxis [Unknown]
  - Abdominal pain upper [Unknown]
